FAERS Safety Report 4504975-1 (Version None)
Quarter: 2004Q4

REPORT INFORMATION
  Report Type: 
  Country: None (occurrence: None)
  Receive Date: 20041015
  Receipt Date: 20031218
  Transmission Date: 20050328
  Serious: Yes (Other)
  Sender: FDA-Public Use
  Company Number: 2003125941

PATIENT
  Sex: Female

DRUGS (8)
  1. NEURONTIN [Suspect]
     Indication: HERPES ZOSTER
     Dosage: (TID), ORAL
     Route: 048
     Dates: start: 20031211
  2. PREDNISONE [Suspect]
     Indication: ILL-DEFINED DISORDER
  3. LIPITOR [Concomitant]
  4. ANTIVIRALS FOR SYSTEMIC USE (ANTIVIRALS FOR SYSTEMIC USE) [Concomitant]
  5. METFORMIN HCL [Concomitant]
  6. VICODIN [Concomitant]
  7. VALSARTAN (VALSARTAN) [Concomitant]
  8. ACETAMINOPHEN [Concomitant]

REACTIONS (8)
  - ABNORMAL SENSATION IN EYE [None]
  - BLOOD GLUCOSE INCREASED [None]
  - BLOOD PRESSURE INCREASED [None]
  - CONVULSION [None]
  - MUSCULOSKELETAL STIFFNESS [None]
  - PAIN [None]
  - TACHYCARDIA [None]
  - TREMOR [None]
